FAERS Safety Report 6870016-4 (Version None)
Quarter: 2010Q3

REPORT INFORMATION
  Report Type: 
  Country: None (occurrence: None)
  Receive Date: 20100722
  Receipt Date: 20081226
  Transmission Date: 20110219
  Serious: No
  Sender: FDA-Public Use
  Company Number: US-PFIZER INC-2008062097

PATIENT
  Sex: Male
  Weight: 113.4 kg

DRUGS (9)
  1. CHANTIX [Suspect]
     Indication: SMOKING CESSATION THERAPY
     Dosage: 1 MG, 2X/DAY
     Route: 048
     Dates: start: 20080701
  2. NORCO [Concomitant]
     Indication: PAIN
  3. CARISOPRODOL [Concomitant]
     Indication: MUSCLE SPASMS
  4. HYDROCODONE [Concomitant]
  5. TYLENOL [Concomitant]
  6. ZOLOFT [Concomitant]
     Indication: DEPRESSION
  7. DIAZEPAM [Concomitant]
     Indication: MUSCLE SPASMS
  8. SOMA [Concomitant]
  9. AMBIEN [Suspect]
     Indication: SLEEP DISORDER
     Dosage: UNK

REACTIONS (10)
  - ABNORMAL DREAMS [None]
  - ARTHRALGIA [None]
  - DRUG DOSE OMISSION [None]
  - INCREASED APPETITE [None]
  - MIDDLE INSOMNIA [None]
  - MYALGIA [None]
  - NAUSEA [None]
  - PAIN [None]
  - STRESS AT WORK [None]
  - WEIGHT INCREASED [None]
